FAERS Safety Report 8576359-0 (Version None)
Quarter: 2012Q2

REPORT INFORMATION
  Report Type: 
  Country: None (occurrence: None)
  Receive Date: 20120423
  Receipt Date: 20091125
  Transmission Date: 20120825
  Serious: Yes (Other)
  Sender: FDA-Public Use
  Company Number: PHEH2009US12846

PATIENT
  Age: 71 Year
  Sex: Female
  Weight: 28.6 kg

DRUGS (24)
  1. MORPHINE SULFATE INJ [Concomitant]
  2. SENOKOT (SENNA ALEXANDRINA FRUIT) [Concomitant]
  3. DULCOLAX [Concomitant]
  4. FLEXERIL [Concomitant]
  5. MICRO-K [Concomitant]
  6. NEXIUM [Concomitant]
  7. CRANBERRY CAPSULES [Concomitant]
  8. ASCORBIC ACID [Concomitant]
  9. ZOCOR [Concomitant]
  10. METOPROLOL TARTRATE [Concomitant]
  11. VENLAFAXINE HCL [Concomitant]
  12. NORCO [Concomitant]
  13. FOLIC ACID [Concomitant]
  14. MULTIVITAMINS, OTHER COMBINATIONS [Concomitant]
  15. SYNTHROID [Concomitant]
  16. ATIVAN [Concomitant]
  17. FUROSEMIDE [Concomitant]
  18. MS CONTIN [Concomitant]
  19. ICAPS (MINERALS NOS, VITAMINS NOS) [Concomitant]
  20. ALDACTONE [Concomitant]
  21. CIPRO [Concomitant]
  22. EXJADE [Suspect]
     Indication: IRON OVERLOAD
     Dosage: 500 MG,  BID, ORAL
     Route: 048
     Dates: start: 20080201
  23. CALCIUM CARBONATE [Concomitant]
  24. RELISTOR (METHYLNALTREXONE BROMIDE) [Concomitant]

REACTIONS (1)
  - BLOOD CREATININE INCREASED [None]
